FAERS Safety Report 16683300 (Version 1)
Quarter: 2019Q3

REPORT INFORMATION
  Report Type: Spontaneous
  Country: JP (occurrence: JP)
  Receive Date: 20190808
  Receipt Date: 20190808
  Transmission Date: 20191004
  Serious: Yes (Other)
  Sender: FDA-Public Use
  Company Number: JP-JNJFOC-20190631031

PATIENT
  Sex: Female

DRUGS (6)
  1. XARELTO [Suspect]
     Active Substance: RIVAROXABAN
     Indication: ATRIAL FIBRILLATION
     Dosage: 15 MG
     Route: 048
  2. NIFEDIPINE. [Suspect]
     Active Substance: NIFEDIPINE
     Dosage: 1 DF PER EVERY ONE AND A HALF DAY
     Route: 065
  3. DIGOXIN. [Concomitant]
     Active Substance: DIGOXIN
  4. ETIZOLAM [Concomitant]
     Active Substance: ETIZOLAM
  5. NIFEDIPINE. [Suspect]
     Active Substance: NIFEDIPINE
     Indication: BLOOD PRESSURE MANAGEMENT
     Dosage: 1 DF
     Route: 065
     Dates: start: 2018
  6. ISOXSUPRINE HYDROCHLORIDE. [Concomitant]
     Active Substance: ISOXSUPRINE HYDROCHLORIDE

REACTIONS (4)
  - Dyspnoea at rest [Unknown]
  - Intentional product misuse [Unknown]
  - Inappropriate schedule of product administration [Unknown]
  - Blood pressure decreased [Unknown]

NARRATIVE: CASE EVENT DATE: 201906
